FAERS Safety Report 6902011-0 (Version None)
Quarter: 2010Q3

REPORT INFORMATION
  Report Type: 
  Country: None (occurrence: None)
  Receive Date: 20100803
  Receipt Date: 20080416
  Transmission Date: 20110219
  Serious: Yes (Other)
  Sender: FDA-Public Use
  Company Number: US-PFIZER INC-2008021882

PATIENT
  Sex: Female
  Weight: 147.4 kg

DRUGS (8)
  1. LYRICA [Suspect]
     Indication: INTERVERTEBRAL DISC PROTRUSION
     Route: 048
     Dates: start: 20071101, end: 20080410
  2. LYRICA [Suspect]
     Indication: PAIN IN EXTREMITY
  3. LYRICA [Suspect]
     Indication: NEURALGIA
  4. ADVAIR DISKUS 100/50 [Concomitant]
  5. MONTELUKAST SODIUM [Concomitant]
  6. ZYRTEC [Concomitant]
  7. WELLBUTRIN [Concomitant]
  8. ZOLPIDEM TARTRATE [Concomitant]

REACTIONS (3)
  - DEPRESSION [None]
  - FEELING ABNORMAL [None]
  - WEIGHT INCREASED [None]
